FAERS Safety Report 6359685-5 (Version None)
Quarter: 2009Q3

REPORT INFORMATION
  Report Type: 
  Country: None (occurrence: None)
  Receive Date: 20090917
  Receipt Date: 20090902
  Transmission Date: 20100115
  Serious: Yes (Other)
  Sender: FDA-Public Use
  Company Number: TW-PFIZER INC-2009263338

PATIENT
  Age: 37 Year

DRUGS (2)
  1. METHYLPREDNISOLONE AND METHYLPREDNISOLONE ACETATE AND METHYLPREDNISOLO [Suspect]
     Indication: SPINAL CORD INJURY
     Dosage: 5.4 MG/KG PER H
     Route: 042
     Dates: start: 20080301
  2. METHYLPREDNISOLONE AND METHYLPREDNISOLONE ACETATE AND METHYLPREDNISOLO [Suspect]
     Dosage: 30 MG/KG OVER 15 MIN
     Dates: start: 20080301

REACTIONS (7)
  - HAEMODIALYSIS [None]
  - PNEUMONIA [None]
  - REFUSAL OF TREATMENT BY PATIENT [None]
  - TUMOUR LYSIS SYNDROME [None]
  - UNRESPONSIVE TO STIMULI [None]
  - URATE NEPHROPATHY [None]
  - VENTRICULAR FIBRILLATION [None]
